FAERS Safety Report 8516854-3 (Version None)
Quarter: 2012Q3

REPORT INFORMATION
  Report Type: 
  Country: None (occurrence: None)
  Receive Date: 20120718
  Receipt Date: 20120710
  Transmission Date: 20120928
  Serious: Yes (Other)
  Sender: FDA-Public Use
  Company Number: GB-009507513-1207GBR004661

PATIENT

DRUGS (3)
  1. TEGRETOL [Concomitant]
     Dosage: UNK
     Dates: start: 20120530, end: 20120627
  2. TEGRETOL [Concomitant]
     Dosage: UNK
     Dates: start: 20120410, end: 20120508
  3. LORATADINE [Suspect]
     Dosage: UNK
     Dates: start: 20120615

REACTIONS (3)
  - ANGIOEDEMA [None]
  - LIP SWELLING [None]
  - PARAESTHESIA ORAL [None]
